FAERS Safety Report 21613571 (Version 1)
Quarter: 2022Q4

REPORT INFORMATION
  Report Type: Report from Study
  Country: US (occurrence: US)
  Receive Date: 20221118
  Receipt Date: 20221118
  Transmission Date: 20230112
  Serious: Yes (Hospitalization)
  Sender: FDA-Public Use
  Company Number: US-ABBVIE-4205563

PATIENT
  Sex: Female

DRUGS (1)
  1. RINVOQ [Suspect]
     Active Substance: UPADACITINIB
     Indication: Colitis ulcerative
     Dosage: FOR 8 WEEKS?FORM STRENGTH: 45 MG
     Route: 048
     Dates: end: 2022

REACTIONS (3)
  - Abdominal abscess [Unknown]
  - Escherichia infection [Unknown]
  - Gait inability [Unknown]
